FAERS Safety Report 9217698 (Version 2)
Quarter: 2013Q2

REPORT INFORMATION
  Report Type: Report from Study
  Country: NL (occurrence: NL)
  Receive Date: 20130408
  Receipt Date: 20130521
  Transmission Date: 20140414
  Serious: Yes (Death)
  Sender: FDA-Public Use
  Company Number: NL-ROCHE-1211042

PATIENT
  Sex: 0

DRUGS (1)
  1. ALTEPLASE [Suspect]
     Indication: CEREBROVASCULAR ACCIDENT
     Dosage: 10% AS BOLUS, 90% IN 1 HOUR
     Route: 042

REACTIONS (1)
  - Cardiac disorder [Fatal]
